FAERS Safety Report 7936277-5 (Version None)
Quarter: 2011Q4

REPORT INFORMATION
  Report Type: 
  Country: None (occurrence: None)
  Receive Date: 20111123
  Receipt Date: 20111110
  Transmission Date: 20120403
  Serious: Yes (Other)
  Sender: FDA-Public Use
  Company Number: TN-MYLANLABS-2011S1023533

PATIENT
  Age: 53 Year
  Sex: Female

DRUGS (1)
  1. METHOTREXATE [Suspect]
     Indication: ACUTE LYMPHOCYTIC LEUKAEMIA
     Dosage: 5G ^THAT SHOULD BE PASSED ON 24H BUT PASSED ON {2H^
     Route: 065

REACTIONS (6)
  - VOMITING [None]
  - DIARRHOEA [None]
  - MEDICATION ERROR [None]
  - PANCYTOPENIA [None]
  - RENAL FAILURE ACUTE [None]
  - HEPATOTOXICITY [None]
